FAERS Safety Report 5430378-1 (Version None)
Quarter: 2007Q3

REPORT INFORMATION
  Report Type: 
  Country: None (occurrence: None)
  Receive Date: 20070828
  Receipt Date: 20070813
  Transmission Date: 20080115
  Serious: Yes (Other)
  Sender: FDA-Public Use
  Company Number: 2007RR-09323

PATIENT
  Age: 48 Year
  Sex: Male

DRUGS (2)
  1. CLARITHROMYCIN [Suspect]
     Dosage: 500 MG, ORAL
     Route: 048
  2. BACTRIM [Concomitant]

REACTIONS (3)
  - AGRANULOCYTOSIS [None]
  - FATIGUE [None]
  - SOMNOLENCE [None]
